FAERS Safety Report 17095305 (Version 1)
Quarter: 2019Q4

REPORT INFORMATION
  Report Type: Spontaneous
  Country: US (occurrence: US)
  Receive Date: 20191101
  Receipt Date: 20191101
  Transmission Date: 20200122
  Serious: Yes (Other)
  Sender: FDA-Public Use
  Company Number: None

PATIENT
  Age: 21 Year
  Sex: Male
  Weight: 81.65 kg

DRUGS (1)
  1. DIVALPROEX [Suspect]
     Active Substance: DIVALPROEX SODIUM
     Indication: SEIZURE
     Route: 048
     Dates: start: 20171002, end: 20180116

REACTIONS (14)
  - Encephalitis autoimmune [None]
  - Chest discomfort [None]
  - Tachycardia [None]
  - Jaundice [None]
  - Hepatic steatosis [None]
  - Drug-induced liver injury [None]
  - Hepatitis acute [None]
  - Liver function test increased [None]
  - Blood bilirubin increased [None]
  - Vomiting [None]
  - Blood albumin decreased [None]
  - Nausea [None]
  - International normalised ratio increased [None]
  - General physical health deterioration [None]

NARRATIVE: CASE EVENT DATE: 20180124
